FAERS Safety Report 8437160-1 (Version None)
Quarter: 2012Q2

REPORT INFORMATION
  Report Type: 
  Country: None (occurrence: None)
  Receive Date: 20120614
  Receipt Date: 20120229
  Transmission Date: 20120825
  Serious: No
  Sender: FDA-Public Use
  Company Number: US-AMGEN-USASP2011034344

PATIENT
  Age: 56 Year
  Sex: Female
  Weight: 60.771 kg

DRUGS (1)
  1. PROLIA [Suspect]
     Indication: OSTEOPOROSIS POSTMENOPAUSAL
     Dosage: 60 MG, Q6MO
     Dates: start: 20110412, end: 20110412

REACTIONS (2)
  - ABASIA [None]
  - ARTHRALGIA [None]
